FAERS Safety Report 7080284-4 (Version None)
Quarter: 2010Q4

REPORT INFORMATION
  Report Type: 
  Country: None (occurrence: None)
  Receive Date: 20101103
  Receipt Date: 20101027
  Transmission Date: 20110411
  Serious: Yes (Hospitalization)
  Sender: FDA-Public Use
  Company Number: GR-ELI_LILLY_AND_COMPANY-GR201010006407

PATIENT
  Age: 80 Year
  Sex: Female

DRUGS (3)
  1. BYETTA [Suspect]
     Dosage: UNK, 3/D
     Route: 058
     Dates: start: 20101020, end: 20101025
  2. INSULIN [Concomitant]
     Dosage: UNK UNK, DAILY (1/D)
     Route: 058
     Dates: end: 20101019
  3. INSULIN [Concomitant]
     Dosage: UNK, DAILY (1/D)
     Route: 058

REACTIONS (5)
  - BLOOD GLUCOSE INCREASED [None]
  - DIARRHOEA [None]
  - INCORRECT DOSE ADMINISTERED [None]
  - OFF LABEL USE [None]
  - VOMITING [None]
